FAERS Safety Report 4284973-6 (Version None)
Quarter: 2004Q1

REPORT INFORMATION
  Report Type: 
  Country: None (occurrence: None)
  Receive Date: 20040203
  Receipt Date: 20040203
  Transmission Date: 20041129
  Serious: Yes (Hospitalization)
  Sender: FDA-Public Use
  Company Number: None

PATIENT
  Age: 21 Year
  Sex: Female
  Weight: 53.5244 kg

DRUGS (11)
  1. RIBAVIRIN [Suspect]
     Indication: HEPATITIS C
     Dosage: 400 MG PO BID
     Route: 048
     Dates: start: 20031105, end: 20040117
  2. INTERFERON ALFACON; LB200-.2 [Suspect]
     Dosage: 12 MCG 3X WEEK SUBCUTANEOUS
     Route: 058
     Dates: start: 20031105, end: 20040117
  3. PROCRIT [Concomitant]
  4. ALESSE [Concomitant]
  5. TYLENOL PM [Concomitant]
  6. ADVIL [Concomitant]
  7. PROTONIX [Concomitant]
  8. MULTIVIT [Concomitant]
  9. VITAMIN C [Concomitant]
  10. VITAMIN E [Concomitant]
  11. MILK THISTLE [Concomitant]

REACTIONS (5)
  - DEHYDRATION [None]
  - HAEMATOCHEZIA [None]
  - LEUKOPENIA [None]
  - NAUSEA [None]
  - VOMITING [None]
